FAERS Safety Report 9995793 (Version 3)
Quarter: 2014Q3

REPORT INFORMATION
  Report Type: Spontaneous
  Country: US (occurrence: None)
  Receive Date: 20140307
  Receipt Date: 20140912
  Transmission Date: 20150326
  Serious: Yes (Life-Threatening, Hospitalization, Other)
  Sender: FDA-Public Use
  Company Number: ADR-2014-00360

PATIENT
  Age: 63 Year
  Sex: Female

DRUGS (2)
  1. CLONIDINE. [Suspect]
     Active Substance: CLONIDINE
     Dosage: 1.123.8 MCG/DAY
     Route: 037
  2. BACLOFEN. [Suspect]
     Active Substance: BACLOFEN
     Indication: NEUROPATHY PERIPHERAL
     Dosage: 499.4 MCG/DAY
     Route: 037

REACTIONS (14)
  - Blood pressure decreased [None]
  - Overdose [None]
  - Aggression [None]
  - Heart rate decreased [None]
  - Mental status changes [None]
  - Delirium [None]
  - Cardio-respiratory arrest [None]
  - Device infusion issue [None]
  - Anxiety [None]
  - Impaired driving ability [None]
  - Implant site reaction [None]
  - Device leakage [None]
  - Sedation [None]
  - Heart rate increased [None]

NARRATIVE: CASE EVENT DATE: 20140227
